FAERS Safety Report 20566210 (Version 1)
Quarter: 2022Q1

REPORT INFORMATION
  Report Type: Spontaneous
  Country: US (occurrence: US)
  Receive Date: 20220308
  Receipt Date: 20220308
  Transmission Date: 20220423
  Serious: No
  Sender: FDA-Public Use
  Company Number: US-BRISTOL-MYERS SQUIBB COMPANY-BMS-2022-035037

PATIENT
  Age: 71 Year
  Sex: Male

DRUGS (1)
  1. SPRYCEL [Suspect]
     Active Substance: DASATINIB
     Indication: Connective tissue neoplasm
     Dosage: 70 MILLIGRAM, BID
     Route: 048
     Dates: start: 20220215

REACTIONS (2)
  - Fatigue [Unknown]
  - Intentional product use issue [Unknown]
